FAERS Safety Report 23857237 (Version 1)
Quarter: 2024Q2

REPORT INFORMATION
  Report Type: Spontaneous
  Country: JP (occurrence: JP)
  Receive Date: 20240515
  Receipt Date: 20240515
  Transmission Date: 20240716
  Serious: Yes (Other)
  Sender: FDA-Public Use
  Company Number: JP-ASTELLAS-2024JP002938

PATIENT
  Age: 20 Year
  Sex: Female

DRUGS (1)
  1. ZOLPIDEM TARTRATE [Suspect]
     Active Substance: ZOLPIDEM TARTRATE
     Dosage: UNK
     Route: 048
     Dates: start: 20190118

REACTIONS (3)
  - Loss of consciousness [Unknown]
  - Victim of chemical submission [Unknown]
  - Labelled drug-food interaction issue [Unknown]

NARRATIVE: CASE EVENT DATE: 20190118
